FAERS Safety Report 7720132-X (Version None)
Quarter: 2011Q3

REPORT INFORMATION
  Report Type: 
  Country: None (occurrence: None)
  Receive Date: 20110824
  Receipt Date: 20110809
  Transmission Date: 20111222
  Serious: Yes (Death, Other)
  Sender: FDA-Public Use
  Company Number: 2011MA011586

PATIENT
  Age: 35 Year
  Sex: Male

DRUGS (6)
  1. VENLAFAXINE HYDROCHLORIDE TABLETS, 100MG (ATLLC) (VENLAFAXINE) [Suspect]
     Dosage: 0.7 UG/G ON AUTOPSY
  2. MITRAGYNINE (NO PREF. NAME) [Suspect]
     Indication: TOXICITY TO VARIOUS AGENTS
     Dosage: 0.16 UG/G ON AUTOPSY
  3. DMA (NO PREF. NAME) [Suspect]
     Indication: TOXICITY TO VARIOUS AGENTS
     Dosage: 0.1 UG/G ON AUTOPSY
  4. TRAMADOL HYDROCHLORIDE [Suspect]
     Indication: TOXICITY TO VARIOUS AGENTS
     Dosage: 0.7 UG/G ON AUTOPSY
  5. ALIMEMAZINE (ALIMEMAZINE) [Suspect]
     Indication: TOXICITY TO VARIOUS AGENTS
     Dosage: 0.3 UG/G ON AUTOPSY
  6. O-DMV (NO PREF. NAME) [Suspect]
     Indication: TOXICITY TO VARIOUS AGENTS
     Dosage: 0.1 UG/G ON AUTOPSY

REACTIONS (3)
  - PULMONARY CONGESTION [None]
  - PULMONARY OEDEMA [None]
  - TOXICITY TO VARIOUS AGENTS [None]
